FAERS Safety Report 5930426-6 (Version None)
Quarter: 2008Q4

REPORT INFORMATION
  Report Type: 
  Country: None (occurrence: None)
  Receive Date: 20081022
  Receipt Date: 20080804
  Transmission Date: 20090506
  Serious: Yes (Hospitalization)
  Sender: FDA-Public Use
  Company Number: 1-16481325

PATIENT
  Age: 42 Year
  Sex: Female

DRUGS (1)
  1. ZIANA [Suspect]
     Indication: ACNE
     Dosage: TOPICAL
     Route: 061
     Dates: start: 20080601

REACTIONS (3)
  - DIARRHOEA HAEMORRHAGIC [None]
  - EYE PRURITUS [None]
  - WEIGHT DECREASED [None]
